FAERS Safety Report 22230253 (Version 2)
Quarter: 2023Q2

REPORT INFORMATION
  Report Type: Spontaneous
  Country: NL (occurrence: NL)
  Receive Date: 20230419
  Receipt Date: 20230511
  Transmission Date: 20230722
  Serious: Yes (Other)
  Sender: FDA-Public Use
  Company Number: None

PATIENT
  Age: 78 Year
  Sex: Female
  Weight: 70 kg

DRUGS (2)
  1. CYCLOSPORINE [Suspect]
     Active Substance: CYCLOSPORINE
     Indication: Pruritus
     Dosage: NOW: LEFT EYE 2X/DAY 1 DROP; RIGHT EYE 2X/DAY
     Route: 047
     Dates: start: 20211110
  2. DEXAMETHASONE [Concomitant]
     Active Substance: DEXAMETHASONE
     Dosage: 1MG/ML

REACTIONS (4)
  - Corneal deposits [Recovering/Resolving]
  - Visual impairment [Recovering/Resolving]
  - Chromatopsia [Recovering/Resolving]
  - Off label use [Unknown]

NARRATIVE: CASE EVENT DATE: 20211110
